FAERS Safety Report 8732470 (Version 3)
Quarter: 2018Q4

REPORT INFORMATION
  Report Type: Spontaneous
  Country: FR (occurrence: FR)
  Receive Date: 20120820
  Receipt Date: 20181009
  Transmission Date: 20190205
  Serious: Yes (Hospitalization)
  Sender: FDA-Public Use
  Company Number: FR-ROCHE-1101019

PATIENT
  Age: 54 Year
  Sex: Female

DRUGS (5)
  1. PREVISCAN (FLUINDIONE) [Concomitant]
     Active Substance: FLUINDIONE
     Indication: MASTOIDITIS
     Route: 065
     Dates: start: 20120619
  2. ROCEPHINE [Suspect]
     Active Substance: CEFTRIAXONE SODIUM
     Indication: MASTOIDITIS
     Route: 030
     Dates: start: 20120619
  3. OFLOCET [Suspect]
     Active Substance: OFLOXACIN
     Indication: MASTOIDITIS
     Dosage: AURICULAR DROPS 1.5MG/0.5ML
     Route: 001
     Dates: start: 20120619
  4. FLAGYL [Suspect]
     Active Substance: METRONIDAZOLE\METRONIDAZOLE HYDROCHLORIDE
     Indication: MASTOIDITIS
     Route: 048
     Dates: start: 20120619, end: 20120726
  5. ANTALGIC [Concomitant]
     Indication: MASTOIDITIS
     Route: 065
     Dates: start: 20120619

REACTIONS (2)
  - Paraesthesia [Recovered/Resolved]
  - Dysaesthesia [Recovered/Resolved]

NARRATIVE: CASE EVENT DATE: 20120716
